FAERS Safety Report 17849288 (Version 1)
Quarter: 2020Q2

REPORT INFORMATION
  Report Type: Spontaneous
  Country: AF (occurrence: AF)
  Receive Date: 20200601
  Receipt Date: 20200601
  Transmission Date: 20200714
  Serious: Yes (Death)
  Sender: FDA-Public Use
  Company Number: None

PATIENT
  Age: 59 Year
  Sex: Male
  Weight: 111.3 kg

DRUGS (1)
  1. REMDESIVIR. [Suspect]
     Active Substance: REMDESIVIR
     Indication: COVID-19 PNEUMONIA
     Route: 042
     Dates: start: 20200528, end: 20200601

REACTIONS (27)
  - Metabolic acidosis [None]
  - Haemoglobin decreased [None]
  - Mean platelet volume increased [None]
  - Mean cell haemoglobin decreased [None]
  - Platelet count decreased [None]
  - Polychromasia [None]
  - Haematocrit decreased [None]
  - Cardio-respiratory arrest [None]
  - Blood bicarbonate decreased [None]
  - Oxygen saturation decreased [None]
  - Red cell distribution width increased [None]
  - Blood potassium increased [None]
  - Blood glucose decreased [None]
  - Blood urea increased [None]
  - Blood albumin decreased [None]
  - Aspartate aminotransferase increased [None]
  - Red blood cell count decreased [None]
  - Blood bilirubin increased [None]
  - Blood sodium increased [None]
  - Protein total decreased [None]
  - Sepsis [None]
  - Blood pH decreased [None]
  - PCO2 increased [None]
  - PO2 decreased [None]
  - Mean cell haemoglobin concentration decreased [None]
  - Glomerular filtration rate decreased [None]
  - Blood creatinine increased [None]

NARRATIVE: CASE EVENT DATE: 20200601
